FAERS Safety Report 9858590 (Version 1)
Quarter: 2014Q1

REPORT INFORMATION
  Report Type: Spontaneous
  Country: US (occurrence: US)
  Receive Date: 20140131
  Receipt Date: 20140131
  Transmission Date: 20141002
  Serious: No
  Sender: FDA-Public Use
  Company Number: US-009507513-1401USA012409

PATIENT
  Age: 42 Year
  Sex: Female

DRUGS (1)
  1. STROMECTOL [Suspect]
     Indication: ACARODERMATITIS
     Dosage: 3 MG, QD
     Route: 048
     Dates: start: 20140108

REACTIONS (1)
  - Drug ineffective [Not Recovered/Not Resolved]
